FAERS Safety Report 21447848 (Version 1)
Quarter: 2022Q4

REPORT INFORMATION
  Report Type: Spontaneous
  Country: DE (occurrence: DE)
  Receive Date: 20221012
  Receipt Date: 20221012
  Transmission Date: 20230112
  Serious: Yes (Hospitalization)
  Sender: FDA-Public Use
  Company Number: DE-ADRED-07560-01

PATIENT
  Age: 79 Year
  Sex: Male

DRUGS (17)
  1. RAMIPRIL [Suspect]
     Active Substance: RAMIPRIL
     Indication: Product used for unknown indication
     Dosage: 5 MILLIGRAM DAILY; 2.5 MG TWICE A DAY,ONE TIME IN THE MORNING AND ONE TIME IN THE EVENING
     Route: 065
  2. METOPROLOL [Suspect]
     Active Substance: METOPROLOL
     Indication: Product used for unknown indication
     Dosage: 1 DOSAGE FORMS DAILY; 23.75MG TWICE A DAY, HALF IN THE MORNING AND HALF IN THE NIGHT
     Route: 065
  3. HYDROCHLOROTHIAZIDE [Suspect]
     Active Substance: HYDROCHLOROTHIAZIDE
     Indication: Product used for unknown indication
     Dosage: 25 MILLIGRAM DAILY; 25G ONCE A DAY IN THE MORNING
     Route: 065
  4. HEPARIN [Concomitant]
     Active Substance: HEPARIN SODIUM
     Indication: Product used for unknown indication
     Dosage: 600 MILLIGRAM DAILY; 600 MG, ONCE DAILY
     Route: 065
  5. LEVOTHYROXINE SODIUM [Concomitant]
     Active Substance: LEVOTHYROXINE SODIUM
     Indication: Product used for unknown indication
     Dosage: 50 MICROGRAM DAILY; 50 UG, ONCE A DAY IN THE MORNING
     Route: 065
  6. ZOPICLONE [Concomitant]
     Active Substance: ZOPICLONE
     Indication: Product used for unknown indication
     Dosage: ONE AT BEDTIME
     Route: 065
  7. HYDROMORPHONE [Concomitant]
     Active Substance: HYDROMORPHONE
     Indication: Product used for unknown indication
     Dosage: 8 MILLIGRAM DAILY; 4 MG TWICE A DAY ONE IN THE MORNING AND ONE IN THE EVENING
     Route: 065
  8. VENLAFAXINE [Concomitant]
     Active Substance: VENLAFAXINE HYDROCHLORIDE
     Indication: Product used for unknown indication
     Dosage: 150 MILLIGRAM DAILY; 150 MG, ONCE A DAY IN THE MORNING
     Route: 065
  9. MIRTAZAPINE [Concomitant]
     Active Substance: MIRTAZAPINE
     Indication: Product used for unknown indication
     Dosage: 30 MG, 0-0-1-0, TABLETTEN
  10. TROSPIUM CHLORIDE [Concomitant]
     Active Substance: TROSPIUM CHLORIDE
     Indication: Product used for unknown indication
     Dosage: 20 MILLIGRAM DAILY; 10 MILLIGRAM TWICE A DAY, ONE IN THE MORNING AND ONE IN THE EVENING
     Route: 065
  11. PREGABALIN [Concomitant]
     Active Substance: PREGABALIN
     Indication: Product used for unknown indication
     Dosage: 150 MILLIGRAM DAILY; 75 MG TWICE A DAY ONE IN THE MORNING AND ONE IN THE EVENING
     Route: 065
  12. AGOMELATINE ARISTO [Concomitant]
     Indication: Product used for unknown indication
     Dosage: 25 MILLIGRAM DAILY; 25MG ONCE IN DAY AT NIGHT
     Route: 065
  13. IBUPROFEN [Concomitant]
     Active Substance: IBUPROFEN
     Indication: Product used for unknown indication
     Dosage: 1200 MILLIGRAM DAILY; 600 MG TWICE A DAY, ONE IN THE MORNING AND ONE IN THE EVENING
     Route: 065
  14. CLOPIDOGREL [Concomitant]
     Active Substance: CLOPIDOGREL BISULFATE
     Indication: Product used for unknown indication
     Dosage: 75 MILLIGRAM DAILY; 75 MG ONCE IN A DAY IN THE MORNING
     Route: 065
  15. ASPIRIN [Concomitant]
     Active Substance: ASPIRIN
     Indication: Product used for unknown indication
     Dosage: 10 MILLIGRAM DAILY; 100 MG ONCE IN A DAY IN THE MORNING
     Route: 065
  16. PANTOPRAZOLE [Concomitant]
     Active Substance: PANTOPRAZOLE
     Indication: Product used for unknown indication
     Dosage: 40 MILLIGRAM DAILY; 40 MG ONCE IN A DAY AT NIGHT
     Route: 065
  17. PIPAMPERONE [Concomitant]
     Active Substance: PIPAMPERONE
     Indication: Product used for unknown indication
     Dosage: 40 MILLIGRAM DAILY; 40 MG ONCE IN A DAY IN THE EVENING
     Route: 065

REACTIONS (3)
  - Hypotension [Unknown]
  - General physical health deterioration [Unknown]
  - Asthenia [Unknown]
